FAERS Safety Report 7033189-9 (Version None)
Quarter: 2010Q4

REPORT INFORMATION
  Report Type: 
  Country: None (occurrence: None)
  Receive Date: 20101007
  Receipt Date: 20101001
  Transmission Date: 20110411
  Serious: Yes (Hospitalization, Disabling)
  Sender: FDA-Public Use
  Company Number: US-MERCK-1009USA04211

PATIENT
  Age: 64 Year
  Sex: Female

DRUGS (11)
  1. JANUVIA [Suspect]
     Indication: DIABETES MELLITUS
     Route: 048
     Dates: end: 20100701
  2. XANAX [Concomitant]
     Route: 065
  3. ACIPHEX [Concomitant]
     Route: 065
  4. CARDIZEM [Concomitant]
     Route: 065
  5. LOPID [Concomitant]
     Route: 065
  6. TOPROL-XL [Concomitant]
     Route: 065
  7. COZAAR [Concomitant]
     Route: 048
  8. ZOLOFT [Concomitant]
     Route: 065
  9. MAGNESIUM (UNSPECIFIED) [Concomitant]
     Route: 065
  10. ULTRAM [Concomitant]
     Route: 065
  11. NEURONTIN [Concomitant]
     Route: 065

REACTIONS (2)
  - NEPHROLITHIASIS [None]
  - PANCREATIC CYST [None]
